FAERS Safety Report 9207237 (Version 2)
Quarter: 2014Q1

REPORT INFORMATION
  Report Type: Spontaneous
  Country: US (occurrence: US)
  Receive Date: 20130403
  Receipt Date: 20140205
  Transmission Date: 20141002
  Serious: Yes (Other)
  Sender: FDA-Public Use
  Company Number: US-BAYER-2013-039685

PATIENT
  Age: 26 Year
  Sex: Female

DRUGS (11)
  1. YAZ [Suspect]
     Dosage: UNK
     Dates: start: 201002, end: 201005
  2. PREVACID [Concomitant]
     Dosage: 30 MG DAILY
     Route: 048
     Dates: start: 20110712
  3. KETOROLAC [Concomitant]
     Dosage: 10 MG EVERY 6 HOURS AS NEEDED
     Route: 048
     Dates: start: 20110715
  4. TRAMADOL [Concomitant]
     Dosage: 50 MG EVERY 4-6 HOURS AS NEEDED
     Route: 048
     Dates: start: 20110831
  5. PROTONIX [Concomitant]
     Dosage: UNK
     Dates: start: 20110831, end: 20111103
  6. BIAXIN [Concomitant]
     Dosage: 500 MG, UNK
     Route: 048
     Dates: start: 20111003
  7. HYCODAN [HYDROCODONE BITARTRATE] [Concomitant]
     Dosage: 5 MG-1.5 MG
     Route: 048
     Dates: start: 20111003
  8. CLARITIN-D [Concomitant]
     Dosage: UNK
     Route: 048
     Dates: start: 20111013
  9. CEFPROZIL [Concomitant]
     Dosage: 500 MG EVERY 12 HOURS FOR 10 DAYS
     Route: 048
     Dates: start: 20111013
  10. TYLENOL #3 [Concomitant]
     Dosage: 300 MG-30 MG, EVERY 6 HOURS AS NEEDED FOR 21 DAYS
     Route: 048
     Dates: start: 20111013
  11. MUCINEX [Concomitant]
     Dosage: UNK
     Dates: start: 20111103

REACTIONS (5)
  - Cholecystitis chronic [None]
  - Gallbladder disorder [None]
  - Injury [None]
  - Pain [None]
  - Emotional distress [None]
